FAERS Safety Report 8172400-8 (Version None)
Quarter: 2012Q1

REPORT INFORMATION
  Report Type: 
  Country: None (occurrence: None)
  Receive Date: 20120229
  Receipt Date: 20120221
  Transmission Date: 20120608
  Serious: Yes (Hospitalization)
  Sender: FDA-Public Use
  Company Number: FR-SHIRE-SPV1-2012-00196

PATIENT
  Sex: Female
  Weight: 62 kg

DRUGS (3)
  1. ANAGRELIDE HCL [Suspect]
     Dosage: UNK
     Route: 048
     Dates: start: 20110929
  2. ANAGRELIDE HCL [Suspect]
     Indication: ESSENTIAL THROMBOCYTHAEMIA
     Dosage: 1 MG, 1X/DAY:QD
     Route: 048
     Dates: start: 20111004
  3. PENTOXIFYLLINE [Concomitant]
     Indication: CEREBROVASCULAR ACCIDENT
     Dosage: UNK
     Dates: start: 20111201

REACTIONS (1)
  - HEMIPARESIS [None]
